FAERS Safety Report 4625353-0 (Version None)
Quarter: 2005Q2

REPORT INFORMATION
  Report Type: 
  Country: None (occurrence: None)
  Receive Date: 20050401
  Receipt Date: 20050323
  Transmission Date: 20051028
  Serious: Yes (Disabling)
  Sender: FDA-Public Use
  Company Number: GB-GLAXOSMITHKLINE-B0375913A

PATIENT
  Sex: Female

DRUGS (3)
  1. SERETIDE [Suspect]
     Indication: DRUG USE FOR UNKNOWN INDICATION
     Route: 055
  2. BRONCHODILATOR [Concomitant]
     Route: 055
  3. CORTICOSTEROID [Concomitant]
     Route: 055

REACTIONS (3)
  - BURNING SENSATION [None]
  - DIFFICULTY IN WALKING [None]
  - PARAESTHESIA [None]
